FAERS Safety Report 17420355 (Version 3)
Quarter: 2020Q2

REPORT INFORMATION
  Report Type: Spontaneous
  Country: US (occurrence: US)
  Receive Date: 20200214
  Receipt Date: 20200413
  Transmission Date: 20200713
  Serious: Yes (Other)
  Sender: FDA-Public Use
  Company Number: US-VERTEX PHARMACEUTICALS-2020-002739

PATIENT
  Age: 34 Year
  Sex: Female

DRUGS (8)
  1. CLINDAMYCIN. [Concomitant]
     Active Substance: CLINDAMYCIN
  2. PROPRANOLOL [Concomitant]
     Active Substance: PROPRANOLOL HYDROCHLORIDE
  3. TRIKAFTA [Suspect]
     Active Substance: ELEXACAFTOR\IVACAFTOR\TEZACAFTOR
     Dosage: HALF IVACAFTOR IN AM AND 1 ELEXA/TEZA/IVA IN AM
     Route: 048
     Dates: start: 2020
  4. AIMOVIG [Concomitant]
     Active Substance: ERENUMAB-AOOE
  5. GABAPENTIN. [Concomitant]
     Active Substance: GABAPENTIN
  6. TRIKAFTA [Suspect]
     Active Substance: ELEXACAFTOR\IVACAFTOR\TEZACAFTOR
     Indication: CYSTIC FIBROSIS
     Dosage: 100 MG ELEXACAFTOR/ 50 MG TEZACAFTOR/ 75 MG IVACAFTOR (2 TABS IN AM); 150MG IVACAFTOR (1 TAB IN PM)
     Route: 048
     Dates: start: 20200122, end: 2020
  7. ADAPALENE. [Concomitant]
     Active Substance: ADAPALENE
  8. AUGMENTIN [Concomitant]
     Active Substance: AMOXICILLIN\CLAVULANATE POTASSIUM

REACTIONS (8)
  - Alopecia [Unknown]
  - Insomnia [Recovering/Resolving]
  - Migraine [Unknown]
  - Increased appetite [Unknown]
  - Seizure [Unknown]
  - Headache [Unknown]
  - Disturbance in attention [Unknown]
  - Night sweats [Unknown]

NARRATIVE: CASE EVENT DATE: 202001
